FAERS Safety Report 20091456 (Version 5)
Quarter: 2022Q3

REPORT INFORMATION
  Report Type: Spontaneous
  Country: US (occurrence: US)
  Receive Date: 20211119
  Receipt Date: 20220928
  Transmission Date: 20221026
  Serious: No
  Sender: FDA-Public Use
  Company Number: US-PFIZER INC-2021401503

PATIENT
  Age: 49 Year
  Sex: Male
  Weight: 95.238 kg

DRUGS (6)
  1. NARDIL [Suspect]
     Active Substance: PHENELZINE SULFATE
     Indication: Depression
     Dosage: UNK
     Dates: start: 1997
  2. NARDIL [Suspect]
     Active Substance: PHENELZINE SULFATE
     Indication: Anxiety
     Dosage: 30 MG TO 90 MG
     Dates: start: 2000
  3. NARDIL [Suspect]
     Active Substance: PHENELZINE SULFATE
     Dosage: UNK
     Dates: start: 2001
  4. NARDIL [Suspect]
     Active Substance: PHENELZINE SULFATE
     Dosage: 60 MG TO 90 MG
     Route: 048
     Dates: start: 2002, end: 2007
  5. NARDIL [Suspect]
     Active Substance: PHENELZINE SULFATE
     Dosage: 15 MG
     Dates: start: 2003
  6. NARDIL [Suspect]
     Active Substance: PHENELZINE SULFATE
     Dosage: 15 MG
     Dates: start: 2017

REACTIONS (2)
  - Drug ineffective [Recovered/Resolved]
  - Depression [Unknown]

NARRATIVE: CASE EVENT DATE: 20020101
